FAERS Safety Report 22146736 (Version 3)
Quarter: 2023Q2

REPORT INFORMATION
  Report Type: Report from Study
  Country: US (occurrence: US)
  Receive Date: 20230328
  Receipt Date: 20230508
  Transmission Date: 20230722
  Serious: Yes (Hospitalization)
  Sender: FDA-Public Use
  Company Number: US-PFIZER INC-PV202300055092

PATIENT
  Age: 10 Year
  Sex: Male
  Weight: 41.1 kg

DRUGS (7)
  1. VINCRISTINE SULFATE [Suspect]
     Active Substance: VINCRISTINE SULFATE
     Indication: Leukaemia
     Dosage: 1.9 MG, ONCE
     Route: 042
     Dates: start: 20220725
  2. METHOTREXATE SODIUM [Suspect]
     Active Substance: METHOTREXATE SODIUM
     Indication: Leukaemia
     Dosage: 15 MG, SINGLE
     Route: 042
     Dates: start: 20221215
  3. CYTARABINE [Suspect]
     Active Substance: CYTARABINE
     Indication: Leukaemia
     Dosage: 75 MG, 1X/DAY (MG/SQ. METER)
     Route: 042
     Dates: start: 20220714
  4. THIOGUANINE [Suspect]
     Active Substance: THIOGUANINE
     Indication: Leukaemia
     Dosage: 80 MG, 1X/DAY, TABLET
     Route: 048
     Dates: start: 20220203
  5. CYCLOPHOSPHAMIDE [Suspect]
     Active Substance: CYCLOPHOSPHAMIDE
     Indication: Leukaemia
     Dosage: 1000 MG, ONCE
     Route: 042
     Dates: start: 20220714
  6. ASPARAGINASE [Suspect]
     Active Substance: ASPARAGINASE
     Indication: Leukaemia
     Dosage: 3150 IU, ONCE, INJECTION
     Route: 042
     Dates: start: 20230216
  7. RUXOLITINIB [Suspect]
     Active Substance: RUXOLITINIB
     Indication: Leukaemia
     Dosage: 50 MG, 2X/DAY, TABLET
     Route: 048
     Dates: start: 20220714

REACTIONS (2)
  - Febrile neutropenia [Recovered/Resolved]
  - Upper respiratory tract infection [Recovered/Resolved]

NARRATIVE: CASE EVENT DATE: 20230220
